FAERS Safety Report 8432375-0 (Version None)
Quarter: 2012Q2

REPORT INFORMATION
  Report Type: 
  Country: None (occurrence: None)
  Receive Date: 20120613
  Receipt Date: 20120612
  Transmission Date: 20120825
  Serious: Yes (Death, Hospitalization)
  Sender: FDA-Public Use
  Company Number: PHFR2010GB05970

PATIENT
  Sex: Male

DRUGS (5)
  1. VENLAFAXINE HCL [Concomitant]
     Indication: DEPRESSION
     Dosage: 225 MG,
  2. METHADONE HCL [Concomitant]
     Indication: DRUG DEPENDENCE
     Dosage: 4 MG,
  3. CLOZARIL [Suspect]
     Indication: SCHIZOPHRENIA
     Route: 048
     Dates: start: 20080104
  4. VALPROIC ACID [Concomitant]
     Indication: CONVULSION
     Dosage: 1200 MG,
  5. CLOZARIL [Suspect]
     Dosage: 475 MG, UNK
     Route: 048

REACTIONS (3)
  - BRONCHOPNEUMONIA [None]
  - ABDOMINAL PAIN [None]
  - CONSTIPATION [None]
